FAERS Safety Report 9603719 (Version 5)
Quarter: 2015Q3

REPORT INFORMATION
  Report Type: Spontaneous
  Country: US (occurrence: US)
  Receive Date: 20131007
  Receipt Date: 20150811
  Transmission Date: 20151125
  Serious: Yes (Death, Congenital Anomaly)
  Sender: FDA-Public Use
  Company Number: US-ABBVIE-13P-163-1154272-00

PATIENT
  Sex: Male

DRUGS (4)
  1. DEPAKOTE [Suspect]
     Active Substance: DIVALPROEX SODIUM
     Indication: PATERNAL DRUGS AFFECTING FOETUS
     Route: 050
  2. DEPAKOTE [Suspect]
     Active Substance: DIVALPROEX SODIUM
     Route: 064
  3. DEPAKENE [Suspect]
     Active Substance: VALPROIC ACID
     Indication: PATERNAL DRUGS AFFECTING FOETUS
     Route: 064
  4. DEPAKENE [Suspect]
     Active Substance: VALPROIC ACID
     Route: 050

REACTIONS (5)
  - Stillbirth [Fatal]
  - Foetal anticonvulsant syndrome [Unknown]
  - Umbilical cord abnormality [Unknown]
  - Paternal drugs affecting foetus [Unknown]
  - Foetal exposure during pregnancy [Unknown]

NARRATIVE: CASE EVENT DATE: 199704
